FAERS Safety Report 14916376 (Version 1)
Quarter: 2018Q2

REPORT INFORMATION
  Report Type: Spontaneous
  Country: BD (occurrence: BD)
  Receive Date: 20180519
  Receipt Date: 20180519
  Transmission Date: 20180711
  Serious: Yes (Other)
  Sender: FDA-Public Use
  Company Number: BD-ROCHE-2122929

PATIENT
  Weight: 64 kg

DRUGS (1)
  1. AVASTIN [Suspect]
     Active Substance: BEVACIZUMAB
     Indication: GLIOBLASTOMA MULTIFORME
     Dosage: 8 CYCLES
     Route: 065
     Dates: start: 20171206, end: 20180327

REACTIONS (1)
  - Glioblastoma multiforme [Unknown]
